FAERS Safety Report 12643986 (Version 1)
Quarter: 2016Q3

REPORT INFORMATION
  Report Type: Spontaneous
  Country: AU (occurrence: AU)
  Receive Date: 20160811
  Receipt Date: 20160811
  Transmission Date: 20161109
  Serious: Yes (Other)
  Sender: FDA-Public Use
  Company Number: AU-PFIZER INC-2016378011

PATIENT
  Sex: Male

DRUGS (6)
  1. NILSTAT [Concomitant]
     Active Substance: NYSTATIN
     Dosage: DOSE UNKNOWN
     Route: 065
  2. ATENOLOL. [Suspect]
     Active Substance: ATENOLOL
     Dosage: DOSE UNKNOWN
     Route: 048
  3. PLENDIL [Suspect]
     Active Substance: FELODIPINE
     Dosage: DOSE UNKNOWN
     Route: 048
  4. COLCHICINE. [Suspect]
     Active Substance: COLCHICINE
     Dosage: DOSE UNKNOWN
     Route: 065
  5. ERYTHROMYCIN. [Suspect]
     Active Substance: ERYTHROMYCIN
     Dosage: DOSE UNKNOWN
     Route: 065
  6. RANITIDINE. [Concomitant]
     Active Substance: RANITIDINE
     Dosage: DOSE UNKNOWN
     Route: 065

REACTIONS (1)
  - Hepatitis [Unknown]
